FAERS Safety Report 17011631 (Version 1)
Quarter: 2019Q4

REPORT INFORMATION
  Report Type: Spontaneous
  Country: US (occurrence: US)
  Receive Date: 20191108
  Receipt Date: 20191108
  Transmission Date: 20200122
  Serious: No
  Sender: FDA-Public Use
  Company Number: US-EPIC PHARMA LLC-2019EPC00258

PATIENT
  Sex: Female
  Weight: 58.96 kg

DRUGS (4)
  1. INSULIN FAST ACTING [Concomitant]
     Dosage: UNK, AS NEEDED
  2. ZYRTEC [Concomitant]
     Active Substance: CETIRIZINE HYDROCHLORIDE
     Dosage: UNK, 1X/DAY
  3. INSULIN LONG ACTING [Concomitant]
     Dosage: 60 UNK
  4. OXYCODONE HYDROCHLORIDE. [Suspect]
     Active Substance: OXYCODONE HYDROCHLORIDE
     Indication: PAIN
     Dosage: 20 MG, 5X/DAY
     Route: 048
     Dates: start: 20190830

REACTIONS (2)
  - Drug ineffective [Not Recovered/Not Resolved]
  - Suspected product quality issue [Not Recovered/Not Resolved]
